FAERS Safety Report 23243767 (Version 1)
Quarter: 2023Q4

REPORT INFORMATION
  Report Type: Spontaneous
  Country: US (occurrence: US)
  Receive Date: 20231130
  Receipt Date: 20231130
  Transmission Date: 20240109
  Serious: No
  Sender: FDA-Public Use
  Company Number: US-CHIESI-2023CHF02428

PATIENT
  Age: 1 Year
  Sex: Male

DRUGS (1)
  1. REVCOVI [Suspect]
     Active Substance: ELAPEGADEMASE-LVLR
     Indication: Combined immunodeficiency
     Dosage: 0.63 ML (2.4 MG/1.5 ML), TWICE PER WEEK
     Route: 065
     Dates: start: 20210722

REACTIONS (3)
  - Nasopharyngitis [Recovered/Resolved]
  - Weight gain poor [Unknown]
  - Blood alkaline phosphatase increased [Unknown]

NARRATIVE: CASE EVENT DATE: 20230424
